FAERS Safety Report 12741740 (Version 1)
Quarter: 2016Q3

REPORT INFORMATION
  Report Type: Spontaneous
  Country: US (occurrence: US)
  Receive Date: 20160913
  Receipt Date: 20160913
  Transmission Date: 20161109
  Serious: Yes (Hospitalization)
  Sender: FDA-Public Use
  Company Number: None

PATIENT
  Sex: Male
  Weight: 59 kg

DRUGS (1)
  1. DALTEPARIN [Suspect]
     Active Substance: DALTEPARIN
     Indication: DEEP VEIN THROMBOSIS
     Dosage: 10000 UNITS EVERYDAY SQ
     Route: 058
     Dates: start: 20150701, end: 20150925

REACTIONS (3)
  - Blood creatinine increased [None]
  - Treatment failure [None]
  - Jugular vein thrombosis [None]

NARRATIVE: CASE EVENT DATE: 20150925
